FAERS Safety Report 15002315 (Version 1)
Quarter: 2018Q3

REPORT INFORMATION
  Report Type: Spontaneous
  Country: US (occurrence: US)
  Receive Date: 20180612
  Receipt Date: 20180612
  Transmission Date: 20181010
  Serious: No
  Sender: FDA-Public Use
  Company Number: US-ADAPT PHARMA INC-2018ADP00030

PATIENT
  Sex: Female

DRUGS (2)
  1. NARCAN [Suspect]
     Active Substance: NALOXONE HYDROCHLORIDE
     Indication: OVERDOSE
     Dosage: 4 MG, ONCE
     Route: 045
     Dates: start: 20180427, end: 20180427
  2. UNKNOWN OPIATE DRUG(S) [Suspect]
     Active Substance: UNSPECIFIED INGREDIENT
     Dosage: UNK, UNK
     Route: 065

REACTIONS (3)
  - Incorrect dose administered [None]
  - Drug withdrawal syndrome [Recovering/Resolving]
  - Overdose [None]

NARRATIVE: CASE EVENT DATE: 20180427
